FAERS Safety Report 4902363-7 (Version None)
Quarter: 2006Q1

REPORT INFORMATION
  Report Type: 
  Country: None (occurrence: None)
  Receive Date: 20060203
  Receipt Date: 20060203
  Transmission Date: 20060701
  Serious: Yes (Death, Hospitalization)
  Sender: FDA-Public Use
  Company Number: None

PATIENT
  Age: 2 Year
  Sex: Male

DRUGS (1)
  1. ADALAT CC [Suspect]
     Dates: start: 20051027

REACTIONS (2)
  - ACCIDENTAL DRUG INTAKE BY CHILD [None]
  - MEDICATION ERROR [None]
